FAERS Safety Report 6511867-5 (Version None)
Quarter: 2009Q4

REPORT INFORMATION
  Report Type: 
  Country: None (occurrence: None)
  Receive Date: 20091222
  Receipt Date: 20091214
  Transmission Date: 20100525
  Serious: No
  Sender: FDA-Public Use
  Company Number: US-ELI_LILLY_AND_COMPANY-US200912003328

PATIENT
  Sex: Female

DRUGS (2)
  1. ZYPREXA [Suspect]
     Dosage: 60 MG, DAILY (1/D)
  2. CLOZAPINE [Concomitant]

REACTIONS (2)
  - OVERDOSE [None]
  - WHITE BLOOD CELL COUNT DECREASED [None]
